FAERS Safety Report 6641040-1 (Version None)
Quarter: 2010Q1

REPORT INFORMATION
  Report Type: 
  Country: None (occurrence: None)
  Receive Date: 20100318
  Receipt Date: 20100122
  Transmission Date: 20100710
  Serious: No
  Sender: FDA-Public Use
  Company Number: US-ASTRAZENECA-2010SE03075

PATIENT
  Age: 52 Year
  Sex: Female

DRUGS (2)
  1. LISINOPRIL [Suspect]
     Route: 048
  2. METOPROLOL TARTRATE [Suspect]
     Route: 048

REACTIONS (2)
  - ALOPECIA [None]
  - BLOOD PRESSURE INCREASED [None]
